FAERS Safety Report 21473241 (Version 2)
Quarter: 2022Q4

REPORT INFORMATION
  Report Type: Spontaneous
  Country: US (occurrence: US)
  Receive Date: 20221018
  Receipt Date: 20221122
  Transmission Date: 20230113
  Serious: Yes (Other)
  Sender: FDA-Public Use
  Company Number: US-PARI RESPIRATORY EQUIPMENT, INC.-2022PAR00021

PATIENT
  Age: 75 Year
  Sex: Female
  Weight: 43.084 kg

DRUGS (28)
  1. KITABIS PAK [Suspect]
     Active Substance: TOBRAMYCIN
     Indication: Bronchiectasis
     Dosage: 300 MG VIA NEBULIZER AS DIRECTED, 2X/DAY ALTERNATING EVERY OTHER MONTH
     Dates: start: 2021
  2. KITABIS PAK [Suspect]
     Active Substance: TOBRAMYCIN
     Indication: Lower respiratory tract infection
  3. KITABIS PAK [Suspect]
     Active Substance: TOBRAMYCIN
     Indication: Pseudomonas infection
  4. KITABIS PAK [Suspect]
     Active Substance: TOBRAMYCIN
     Indication: Pseudomonas infection
  5. KITABIS PAK [Suspect]
     Active Substance: TOBRAMYCIN
     Indication: Burkholderia mallei infection
  6. KITABIS PAK [Suspect]
     Active Substance: TOBRAMYCIN
     Indication: Burkholderia pseudomallei infection
  7. MECLIZINE HYDROCHLORIDE [Concomitant]
     Active Substance: MECLIZINE HYDROCHLORIDE
     Dosage: 1 TABLET (12.5 MG), 2X/DAY AS NEEDED
  8. ONDANSETRON [Concomitant]
     Active Substance: ONDANSETRON
     Dosage: 1 TABLET (4 MG), EVERY 8 HOURS AS NEEDED
     Route: 048
  9. DULOXETINE HCL DR (CYMBALTA) [Concomitant]
  10. CLOBETASOL EMOLLIENT [Concomitant]
     Dosage: APPLY TO RASH ON TRUNK AND EXTREMITIES, 2X/DAY X 2 WEEKS (DO NOT APPLY TO FACE, ARMPITS, OR GROIN)
  11. TRIAMCINOLONE ACETONIDE [Concomitant]
     Active Substance: TRIAMCINOLONE ACETONIDE
     Dosage: APPLY TO RASG ON CHEEK, 2X/DAY X1 WEEK ONLY. REPEAT WHEN INSTRUCTED TO BY ME
     Route: 061
  12. VITAMINS [Concomitant]
     Active Substance: VITAMINS
  13. VITAMIN D3 [Concomitant]
     Active Substance: CHOLECALCIFEROL
     Dosage: 4000 IU
  14. VITAMIN E [Concomitant]
     Active Substance: .ALPHA.-TOCOPHEROL
  15. CLONAZEPAM [Concomitant]
     Active Substance: CLONAZEPAM
  16. METAMUCIL [Concomitant]
     Active Substance: PLANTAGO SEED
  17. FISH OIL [Concomitant]
     Active Substance: FISH OIL
  18. MANNA COLLAGEN PEPTIDES OPTIMAL BIO AVAILABILITY [Concomitant]
  19. ALENDRONATE [Concomitant]
     Active Substance: ALENDRONATE SODIUM
     Dosage: 1 TABLET (70 MG), EVERY 7 DAYS WITH FULL GLASS OF WATER ON EMPTY STOMACH (NOTHING BY MOUTH OR LIE DO
     Route: 048
  20. COLLAGEN (BOVINE) [Concomitant]
     Dosage: UNK, 1X/DAY
     Route: 048
  21. HYDROCORTISONE [Concomitant]
     Active Substance: HYDROCORTISONE
     Dosage: APPLY TO THE RASH ON THE FACE, 2X/DAY FOR A WEEK
     Route: 061
  22. HYDROXYZINE [Concomitant]
     Active Substance: HYDROXYZINE HYDROCHLORIDE
     Dosage: 10 MG, EVERY 6 HOURS AS NEEDED
     Route: 048
  23. KLOPOPIN [Concomitant]
     Dosage: 2 MG, 2X/DAY
  24. MINERALS\VITAMINS [Concomitant]
     Active Substance: MINERALS\VITAMINS
     Dosage: 1 TABLETS, 1X/DAY
     Route: 048
  25. MUPIROCIN [Concomitant]
     Active Substance: MUPIROCIN
     Dosage: APPLY TO RASH ON RIGHT FOREARM, 1-2 TIMES DAILY X 2 WEEKS
     Route: 061
  26. VITAMIN D [Concomitant]
     Active Substance: VITAMIN D NOS
     Dosage: 4000 IU, 1X/DAY
     Route: 048
  27. .ALPHA.-TOCOPHEROL ACETATE [Concomitant]
     Active Substance: .ALPHA.-TOCOPHEROL ACETATE
     Dosage: 400 IU, 1X/DAY
     Route: 048
  28. ZYRTEC [Concomitant]
     Active Substance: CETIRIZINE HYDROCHLORIDE
     Dosage: 10 MG, 1X/DAY
     Route: 048

REACTIONS (33)
  - Myocardial infarction [Not Recovered/Not Resolved]
  - Bundle branch block right [Not Recovered/Not Resolved]
  - Hypoxia [Recovered/Resolved]
  - Haematochezia [Not Recovered/Not Resolved]
  - Dyspnoea [Recovered/Resolved]
  - Lung opacity [Not Recovered/Not Resolved]
  - QRS axis abnormal [Recovered/Resolved]
  - Abdominal pain upper [Recovering/Resolving]
  - Nausea [Recovered/Resolved]
  - Hepatic enzyme increased [Recovered/Resolved]
  - Gastric infection [Unknown]
  - Proctalgia [Recovering/Resolving]
  - Flank pain [Recovering/Resolving]
  - Gastritis [Recovering/Resolving]
  - Flatulence [Recovering/Resolving]
  - Mucosal prolapse syndrome [Recovering/Resolving]
  - Malaise [Recovered/Resolved]
  - Blood creatine phosphokinase increased [Recovered/Resolved]
  - Abdominal pain [Not Recovered/Not Resolved]
  - Pyrexia [Recovered/Resolved]
  - Hyperhidrosis [Recovering/Resolving]
  - Night sweats [Recovering/Resolving]
  - Fatigue [Recovering/Resolving]
  - Muscular weakness [Not Recovered/Not Resolved]
  - Chills [Unknown]
  - Tachypnoea [Recovered/Resolved]
  - Dizziness [Unknown]
  - Chest discomfort [Unknown]
  - Pain [Not Recovered/Not Resolved]
  - Wheezing [Not Recovered/Not Resolved]
  - Productive cough [Recovered/Resolved]
  - Cough [Recovered/Resolved]
  - Off label use [Not Recovered/Not Resolved]

NARRATIVE: CASE EVENT DATE: 20211218
